FAERS Safety Report 6447159-2 (Version None)
Quarter: 2009Q4

REPORT INFORMATION
  Report Type: 
  Country: None (occurrence: None)
  Receive Date: 20091119
  Receipt Date: 20091109
  Transmission Date: 20100525
  Serious: Yes (Other)
  Sender: FDA-Public Use
  Company Number: IE-PFIZER INC-2009295243

PATIENT
  Age: 67 Year
  Sex: Female

DRUGS (8)
  1. LIPITOR [Suspect]
     Indication: BLOOD CHOLESTEROL INCREASED
     Dosage: 80 MG, UNK
  2. LIPITOR [Interacting]
     Dosage: 20 MG, UNK
  3. PROPAFENONE [Interacting]
     Indication: ATRIAL FIBRILLATION
  4. VALSARTAN [Concomitant]
  5. ZANTAC [Concomitant]
  6. ACETYLSALICYLIC ACID [Concomitant]
  7. CLAVIX AS [Concomitant]
  8. OMACOR [Concomitant]

REACTIONS (4)
  - BLOOD CHOLESTEROL INCREASED [None]
  - DRUG INTERACTION [None]
  - GAMMA-GLUTAMYLTRANSFERASE INCREASED [None]
  - LIVER FUNCTION TEST ABNORMAL [None]
